FAERS Safety Report 13367233 (Version 1)
Quarter: 2017Q1

REPORT INFORMATION
  Report Type: Spontaneous
  Country: US (occurrence: US)
  Receive Date: 20170323
  Receipt Date: 20170323
  Transmission Date: 20170429
  Serious: No
  Sender: FDA-Public Use
  Company Number: None

PATIENT
  Age: 89 Year
  Sex: Female
  Weight: 42.3 kg

DRUGS (1)
  1. FORTEO [Suspect]
     Active Substance: TERIPARATIDE
     Indication: OSTEOPOROSIS
     Route: 058

REACTIONS (4)
  - Dizziness [None]
  - Oedema peripheral [None]
  - Peripheral swelling [None]
  - Abdominal discomfort [None]

NARRATIVE: CASE EVENT DATE: 20170320
